FAERS Safety Report 16246608 (Version 7)
Quarter: 2019Q3

REPORT INFORMATION
  Report Type: Report from Study
  Country: None (occurrence: ES)
  Receive Date: 20190427
  Receipt Date: 20190801
  Transmission Date: 20191004
  Serious: Yes (Other)
  Sender: FDA-Public Use
  Company Number: ES-ABBVIE-19S-144-2760742-00

PATIENT
  Age: 78 Year
  Sex: Female
  Weight: 53 kg

DRUGS (4)
  1. MADOPAR RETARD [Concomitant]
     Indication: PRODUCT USED FOR UNKNOWN INDICATION
     Dosage: 100 MG/ 25 MG
     Route: 048
     Dates: start: 20190610
  2. DUODOPA [Suspect]
     Active Substance: CARBIDOPA\LEVODOPA
     Dosage: MD 16 ML CD 5 ML
     Route: 050
     Dates: start: 201906
  3. DUODOPA [Suspect]
     Active Substance: CARBIDOPA\LEVODOPA
     Indication: PARKINSON^S DISEASE
     Route: 050
     Dates: start: 20180315, end: 2019
  4. PROPOFOL. [Concomitant]
     Active Substance: PROPOFOL
     Indication: SEDATION
     Dosage: CONTINUOUS PERFUSION
     Route: 042
     Dates: start: 20190425, end: 20190425

REACTIONS (8)
  - Parkinson^s disease [Unknown]
  - Laryngospasm [Recovered/Resolved]
  - Dysphagia [Not Recovered/Not Resolved]
  - Speech disorder [Not Recovered/Not Resolved]
  - Cough [Recovered/Resolved]
  - Device dislocation [Recovered/Resolved]
  - Drug ineffective [Unknown]
  - Mobility decreased [Not Recovered/Not Resolved]

NARRATIVE: CASE EVENT DATE: 2019
